FAERS Safety Report 16988945 (Version 1)
Quarter: 2019Q4

REPORT INFORMATION
  Report Type: Report from Study
  Country: CA (occurrence: CA)
  Receive Date: 20191104
  Receipt Date: 20191104
  Transmission Date: 20200122
  Serious: Yes (Death)
  Sender: FDA-Public Use
  Company Number: CA-EMD SERONO-9125491

PATIENT
  Age: 9 Year
  Sex: Male

DRUGS (2)
  1. SAIZEN [Suspect]
     Active Substance: SOMATROPIN
     Indication: GROWTH HORMONE DEFICIENCY
     Route: 058
     Dates: start: 20180428
  2. SAIZEN [Suspect]
     Active Substance: SOMATROPIN
     Indication: NOONAN SYNDROME

REACTIONS (3)
  - Death [Fatal]
  - Chest pain [Fatal]
  - Off label use [Unknown]

NARRATIVE: CASE EVENT DATE: 20180428
